FAERS Safety Report 5150996-8 (Version None)
Quarter: 2006Q4

REPORT INFORMATION
  Report Type: 
  Country: None (occurrence: None)
  Receive Date: 20061115
  Receipt Date: 20061103
  Transmission Date: 20070319
  Serious: Yes (Life-Threatening, Other)
  Sender: FDA-Public Use
  Company Number: US-JNJFOC-20061100477

PATIENT
  Age: 75 Year
  Sex: Female

DRUGS (4)
  1. REOPRO [Suspect]
     Indication: PERCUTANEOUS CORONARY INTERVENTION
  2. ACETYLSALICYLIC ACID SRT [Concomitant]
  3. CLOPIDOGREL [Concomitant]
  4. HEPARIN [Concomitant]

REACTIONS (2)
  - ACUTE LEFT VENTRICULAR FAILURE [None]
  - CATHETER SITE HAEMORRHAGE [None]
